FAERS Safety Report 9571124 (Version 1)
Quarter: 2013Q4

REPORT INFORMATION
  Report Type: Report from Study
  Country: IE (occurrence: IE)
  Receive Date: 20131001
  Receipt Date: 20131001
  Transmission Date: 20140711
  Serious: Yes (Other)
  Sender: FDA-Public Use
  Company Number: PHHY2013IE107364

PATIENT
  Sex: Female

DRUGS (2)
  1. GILENYA [Suspect]
     Indication: SECONDARY PROGRESSIVE MULTIPLE SCLEROSIS
     Dosage: 0.5 MG, QD
     Route: 048
     Dates: start: 20130925
  2. GILENYA [Suspect]
     Indication: OFF LABEL USE

REACTIONS (2)
  - Blood pressure decreased [Unknown]
  - Bradycardia [Recovered/Resolved]
